FAERS Safety Report 9260307 (Version 1)
Quarter: 2013Q2

REPORT INFORMATION
  Report Type: Spontaneous
  Country: DK (occurrence: DK)
  Receive Date: 20130429
  Receipt Date: 20130429
  Transmission Date: 20140414
  Serious: Yes (Other)
  Sender: FDA-Public Use
  Company Number: DK-MPIJNJ-2013-03020

PATIENT
  Sex: 0

DRUGS (5)
  1. VELCADE [Suspect]
     Indication: PRODUCT USED FOR UNKNOWN INDICATION
     Route: 065
  2. LENALIDOMIDE [Suspect]
     Indication: PRODUCT USED FOR UNKNOWN INDICATION
     Dosage: 25 MG, UNK
     Route: 065
     Dates: start: 20130109
  3. LENALIDOMIDE [Suspect]
     Dosage: 15 MG, UNK
     Route: 065
     Dates: start: 20130206, end: 20130415
  4. DEXAMETHASONE [Concomitant]
     Dosage: 40 MG, UNK
     Dates: start: 20130108, end: 20130410
  5. ACETYLSALICYLIC ACID [Concomitant]
     Indication: PROPHYLAXIS
     Dosage: 150 MG, UNK
     Dates: start: 20130108

REACTIONS (2)
  - Retinal vein thrombosis [Recovered/Resolved with Sequelae]
  - Blindness [Not Recovered/Not Resolved]
